FAERS Safety Report 7671262-2 (Version None)
Quarter: 2011Q3

REPORT INFORMATION
  Report Type: 
  Country: None (occurrence: None)
  Receive Date: 20110803
  Receipt Date: 20110721
  Transmission Date: 20111222
  Serious: Yes (Other)
  Sender: FDA-Public Use
  Company Number: 2011SP033932

PATIENT
  Sex: Female

DRUGS (2)
  1. PEGATRON (PEGYLATED INTERFERON ALFA-2B W/RIBAVIRIN) [Suspect]
     Indication: PRODUCT USED FOR UNKNOWN INDICATION
  2. LEXAPRO [Concomitant]

REACTIONS (4)
  - WEIGHT INCREASED [None]
  - PLATELET COUNT DECREASED [None]
  - CHEST PAIN [None]
  - RED BLOOD CELL COUNT DECREASED [None]
